FAERS Safety Report 11924007 (Version 1)
Quarter: 2016Q1

REPORT INFORMATION
  Report Type: Spontaneous
  Country: US (occurrence: US)
  Receive Date: 20160118
  Receipt Date: 20160118
  Transmission Date: 20160526
  Serious: No
  Sender: FDA-Public Use
  Company Number: US-009507513-1512USA014638

PATIENT
  Age: 74 Year
  Sex: Female

DRUGS (2)
  1. ZETIA [Suspect]
     Active Substance: EZETIMIBE
     Indication: BLOOD CHOLESTEROL INCREASED
     Dosage: 10 MG, QD
     Route: 048
     Dates: start: 20151130, end: 20151208
  2. PRINIVIL [Concomitant]
     Active Substance: LISINOPRIL

REACTIONS (3)
  - Ear pain [Not Recovered/Not Resolved]
  - Sinus headache [Recovered/Resolved]
  - Tympanic membrane disorder [Not Recovered/Not Resolved]

NARRATIVE: CASE EVENT DATE: 20151130
